FAERS Safety Report 5261298-3 (Version None)
Quarter: 2007Q1

REPORT INFORMATION
  Report Type: 
  Country: None (occurrence: None)
  Receive Date: 20070306
  Receipt Date: 20070219
  Transmission Date: 20070707
  Serious: Yes (Death, Hospitalization, Other)
  Sender: FDA-Public Use
  Company Number: 2006MP000701

PATIENT
  Age: 52 Year
  Sex: Male

DRUGS (6)
  1. GLIADEL [Suspect]
     Indication: GLIOBLASTOMA MULTIFORME
     Dosage: 61.6 MG/X1; ICER
     Dates: start: 20041012
  2. TEMOZOLOMIDE [Concomitant]
  3. DEXAMETHASONE [Concomitant]
  4. OMEPRAZOLE [Concomitant]
  5. TIAPRIZAL [Concomitant]
  6. ISOPHANE INSULIN [Concomitant]

REACTIONS (3)
  - CEREBRAL VENTRICLE DILATATION [None]
  - COGNITIVE DISORDER [None]
  - PNEUMONIA ASPIRATION [None]
